FAERS Safety Report 4819598-4 (Version None)
Quarter: 2005Q4

REPORT INFORMATION
  Report Type: 
  Country: None (occurrence: None)
  Receive Date: 20051102
  Receipt Date: 20051102
  Transmission Date: 20060501
  Serious: Yes (Other)
  Sender: FDA-Public Use
  Company Number: None

PATIENT
  Age: 41 Year
  Sex: Female
  Weight: 61.2356 kg

DRUGS (5)
  1. LINEZOLID 600 [Suspect]
     Indication: ABSCESS
     Dosage: 600 Q 12 PO
     Route: 048
     Dates: start: 20051013, end: 20051020
  2. LINEZOLID 600 [Suspect]
     Indication: CELLULITIS
     Dosage: 600 Q 12 PO
     Route: 048
     Dates: start: 20051013, end: 20051020
  3. LINEZOLID 600 [Suspect]
     Indication: POSTOPERATIVE WOUND INFECTION
     Dosage: 600 Q 12 PO
     Route: 048
     Dates: start: 20051013, end: 20051020
  4. GATIFLOXACIN [Suspect]
     Indication: CELLULITIS
     Dosage: 200 Q D PO
     Route: 048
     Dates: start: 20050930, end: 20051017
  5. BENADRYL [Concomitant]

REACTIONS (13)
  - ABSCESS [None]
  - CELLULITIS [None]
  - DRY SKIN [None]
  - EYE SWELLING [None]
  - HAEMATURIA [None]
  - POSTOPERATIVE INFECTION [None]
  - PSEUDOMONAS INFECTION [None]
  - RASH ERYTHEMATOUS [None]
  - RASH GENERALISED [None]
  - RASH PRURITIC [None]
  - SKIN EXFOLIATION [None]
  - URTICARIA [None]
  - WOUND COMPLICATION [None]
